FAERS Safety Report 9115178 (Version 2)
Quarter: 2013Q2

REPORT INFORMATION
  Report Type: Report from Study
  Country: CH (occurrence: CH)
  Receive Date: 20130225
  Receipt Date: 20130625
  Transmission Date: 20140414
  Serious: Yes (Death, Life-Threatening, Hospitalization, Other)
  Sender: FDA-Public Use
  Company Number: CH-GENZYME-CLOF-1002446

PATIENT
  Age: 43 Year
  Sex: Male

DRUGS (10)
  1. EVOLTRA [Suspect]
     Indication: ACUTE MYELOID LEUKAEMIA
     Dosage: 10 MG/M2
     Route: 042
     Dates: start: 20121114, end: 20121118
  2. CYTARABINE [Suspect]
     Indication: ACUTE MYELOID LEUKAEMIA
     Dosage: 600 MG/M2, UNK
     Route: 042
     Dates: start: 20121114, end: 20121119
  3. AMSACRINE [Suspect]
     Indication: ACUTE MYELOID LEUKAEMIA
     Dosage: 120 MG/M2, UNK
     Route: 042
     Dates: start: 20121117, end: 20121119
  4. CEFEPIME [Concomitant]
     Indication: INFECTION
     Dosage: 6 G, UNK
     Route: 042
     Dates: start: 20121122
  5. IMIPENEM [Concomitant]
     Indication: INFECTION
     Dosage: 3000 MG, UNK
     Route: 042
     Dates: start: 20121129
  6. PIPERACILLIN [Concomitant]
     Indication: INFECTION
     Dosage: 18 G, UNK
     Route: 042
     Dates: start: 20121126
  7. VANCOMYCIN [Concomitant]
     Indication: INFECTION
     Dosage: 2500 MG, UNK
     Route: 042
     Dates: start: 20121201
  8. INVANZ [Concomitant]
     Indication: INFECTION
     Dosage: 1 G, UNK
     Route: 042
     Dates: start: 20121217
  9. CANDIDAS [Concomitant]
     Indication: INFECTION
     Dosage: 50 MG, UNK
     Route: 042
     Dates: start: 201212
  10. FLUCONAZOLE [Concomitant]
     Indication: INFECTION
     Dosage: 400 MG, UNK
     Route: 042
     Dates: start: 201212

REACTIONS (5)
  - Death [Fatal]
  - Caecitis [Unknown]
  - Hepatic candidiasis [Recovered/Resolved]
  - Agranulocytosis [Recovered/Resolved]
  - Systemic candida [Unknown]
